FAERS Safety Report 13167225 (Version 2)
Quarter: 2017Q1

REPORT INFORMATION
  Report Type: Report from Study
  Country: BR (occurrence: BR)
  Receive Date: 20170131
  Receipt Date: 20170202
  Transmission Date: 20170428
  Serious: Yes (Hospitalization, Other)
  Sender: FDA-Public Use
  Company Number: BR-VIIV HEALTHCARE LIMITED-BR2017GSK012824

PATIENT
  Age: 38 Year
  Sex: Female

DRUGS (5)
  1. HYDRALAZINE [Suspect]
     Active Substance: HYDRALAZINE HYDROCHLORIDE
     Indication: BLOOD PRESSURE INADEQUATELY CONTROLLED
  2. ISENTRESS [Suspect]
     Active Substance: RALTEGRAVIR POTASSIUM
     Indication: HIV INFECTION
     Dosage: UNK
     Route: 048
     Dates: start: 20161128
  3. LAMIVUDINE AND ZIDOVUDINE [Suspect]
     Active Substance: LAMIVUDINE\ZIDOVUDINE
     Indication: HIV INFECTION
     Dosage: UNK
     Route: 048
     Dates: start: 20161128
  4. METHYLDOPA. [Suspect]
     Active Substance: METHYLDOPA
     Indication: BLOOD PRESSURE INADEQUATELY CONTROLLED
  5. NIFEDIPINE. [Suspect]
     Active Substance: NIFEDIPINE
     Indication: BLOOD PRESSURE INADEQUATELY CONTROLLED

REACTIONS (5)
  - Drug ineffective [Unknown]
  - Stillbirth [Unknown]
  - Exposure during pregnancy [Unknown]
  - Pre-eclampsia [Unknown]
  - Blood pressure inadequately controlled [Unknown]

NARRATIVE: CASE EVENT DATE: 20170117
